FAERS Safety Report 13182053 (Version 2)
Quarter: 2017Q1

REPORT INFORMATION
  Report Type: Spontaneous
  Country: JP (occurrence: JP)
  Receive Date: 20170202
  Receipt Date: 20170302
  Transmission Date: 20170428
  Serious: Yes (Hospitalization)
  Sender: FDA-Public Use
  Company Number: JP-IMPAX LABORATORIES, INC-2017-IPXL-00183

PATIENT
  Age: 56 Year
  Sex: Male

DRUGS (2)
  1. OMEPRAZOLE DELAYED RELEASE [Suspect]
     Active Substance: OMEPRAZOLE
     Indication: OESOPHAGEAL HAEMORRHAGE
     Dosage: 20 MG, TWICE A DAY
     Route: 042
  2. OMEPRAZOLE DELAYED RELEASE [Suspect]
     Active Substance: OMEPRAZOLE
     Indication: GASTRIC HAEMORRHAGE

REACTIONS (1)
  - Rhabdomyolysis [Recovered/Resolved]
